FAERS Safety Report 5086398-2 (Version None)
Quarter: 2006Q3

REPORT INFORMATION
  Report Type: 
  Country: None (occurrence: None)
  Receive Date: 20060703
  Receipt Date: 20060321
  Transmission Date: 20061208
  Serious: No
  Sender: FDA-Public Use
  Company Number: 2006S1002470

PATIENT
  Age: 52 Year
  Sex: Female

DRUGS (11)
  1. CLOZAPINE [Suspect]
     Indication: PSYCHOTIC DISORDER
     Dosage: SEE IMAGE
     Route: 048
     Dates: start: 20060301, end: 20060320
  2. CLOZAPINE [Suspect]
     Indication: PSYCHOTIC DISORDER
     Dosage: SEE IMAGE
     Route: 048
     Dates: start: 20060301, end: 20060320
  3. LORAZEPAM [Concomitant]
  4. VALPROATE SODIUM [Concomitant]
  5. QUETIAPINE FUMARATE [Concomitant]
  6. VALSARTAN [Concomitant]
  7. CLONAZEPAM [Concomitant]
  8. HYDROCHLOROTHIAZIDE [Concomitant]
  9. HALOPERIDOL [Concomitant]
  10. PHENYTOIN SODIUM [Concomitant]
  11. AMANTADINE HCL [Concomitant]

REACTIONS (1)
  - GRANULOCYTOPENIA [None]
